FAERS Safety Report 7065091-0 (Version None)
Quarter: 2010Q4

REPORT INFORMATION
  Report Type: 
  Country: None (occurrence: None)
  Receive Date: 20101027
  Receipt Date: 19901018
  Transmission Date: 20110411
  Serious: Yes (Death, Hospitalization)
  Sender: FDA-Public Use
  Company Number: DE-ROCHE-900316699002

PATIENT
  Age: 60 Year
  Sex: Female

DRUGS (1)
  1. DORMICUM (INJ) [Suspect]
     Route: 042

REACTIONS (3)
  - COMA [None]
  - CONVULSION [None]
  - METASTATIC NEOPLASM [None]
